FAERS Safety Report 20205019 (Version 3)
Quarter: 2021Q4

REPORT INFORMATION
  Report Type: Report from Study
  Country: US (occurrence: US)
  Receive Date: 20211220
  Receipt Date: 20211230
  Transmission Date: 20220303
  Serious: No
  Sender: FDA-Public Use
  Company Number: US-NOVARTISTESTPH-NVSC2021US291260

PATIENT
  Age: 84 Year
  Sex: Male

DRUGS (2)
  1. ENTRESTO [Suspect]
     Active Substance: SACUBITRIL\VALSARTAN
     Indication: Product used for unknown indication
     Dosage: 50 MG, BID (24/26 MG)
     Route: 048
     Dates: start: 20211215
  2. ENTRESTO [Suspect]
     Active Substance: SACUBITRIL\VALSARTAN
     Dosage: 1 DOSAGE FORM,BID(24/26MG)
     Route: 048

REACTIONS (3)
  - Dizziness [Unknown]
  - Inappropriate schedule of product administration [Unknown]
  - Weight decreased [Unknown]

NARRATIVE: CASE EVENT DATE: 20211216
